FAERS Safety Report 15783518 (Version 1)
Quarter: 2019Q1

REPORT INFORMATION
  Report Type: Report from Study
  Country: ES (occurrence: ES)
  Receive Date: 20190102
  Receipt Date: 20190102
  Transmission Date: 20190417
  Serious: Yes (Hospitalization)
  Sender: FDA-Public Use
  Company Number: ES-MYLANLABS-2018M1096986

PATIENT
  Age: 57 Year
  Sex: Female

DRUGS (6)
  1. PREDNISONA [Interacting]
     Active Substance: PREDNISONE
     Indication: RENAL TRANSPLANT
     Dosage: 27.5 MILLIGRAM, QW
     Route: 048
     Dates: start: 20180119
  2. MICOFENOLATO MOFETIL [Interacting]
     Active Substance: MYCOPHENOLATE MOFETIL
     Indication: RENAL TRANSPLANT
     Dosage: 1 GRAM, QD
     Route: 048
     Dates: start: 20180119
  3. BISOPROLOL [Concomitant]
     Active Substance: BISOPROLOL
     Indication: HYPERTENSION
     Dosage: 2.5 MILLIGRAM, QD
     Route: 048
     Dates: start: 20121214
  4. TACROLIMUS. [Suspect]
     Active Substance: TACROLIMUS
     Indication: RENAL TRANSPLANT
     Dosage: 2 MILLIGRAM, QD
     Route: 048
     Dates: start: 20180119
  5. TROMALYT [Concomitant]
     Active Substance: ASPIRIN
     Indication: MYOCARDIAL ISCHAEMIA
     Dosage: 150 MILLIGRAM, QD
     Route: 048
     Dates: start: 20121214
  6. LEDERFOLIN [Concomitant]
     Active Substance: LEUCOVORIN CALCIUM
     Dosage: 15 MILLIGRAM, QD
     Route: 048
     Dates: start: 201801

REACTIONS (2)
  - Drug interaction [Unknown]
  - Cytomegalovirus infection [Recovering/Resolving]

NARRATIVE: CASE EVENT DATE: 20180202
